FAERS Safety Report 6421459-4 (Version None)
Quarter: 2009Q4

REPORT INFORMATION
  Report Type: 
  Country: None (occurrence: None)
  Receive Date: 20091030
  Receipt Date: 20091019
  Transmission Date: 20100525
  Serious: Yes (Hospitalization, Other)
  Sender: FDA-Public Use
  Company Number: FR-PFIZER INC-2009285022

PATIENT
  Age: 76 Year

DRUGS (12)
  1. EXEMESTANE [Suspect]
     Indication: BREAST CANCER
     Dosage: 25 MG, 1X/DAY
     Route: 048
     Dates: start: 20090227, end: 20091008
  2. DASATINIB VS PLACEBO [Suspect]
     Indication: BREAST CANCER
     Dosage: 100 MG, 1X/DAY
     Route: 048
     Dates: start: 20090227, end: 20091008
  3. METFORMINE ^MERCK^ [Concomitant]
     Dosage: UNK
     Dates: start: 20041231
  4. ATORVASTATIN [Concomitant]
     Dosage: UNK
     Dates: start: 20061231, end: 20091008
  5. FLUOXETINE [Concomitant]
     Dosage: UNK
     Dates: start: 20021231
  6. ACEBUTOLOL [Concomitant]
     Dosage: UNK
     Dates: start: 19891231
  7. LEVOTHYROXINE [Concomitant]
     Dosage: UNK
     Dates: start: 20041231
  8. DIOSMIN [Concomitant]
     Dosage: UNK
     Dates: start: 20071231, end: 20091008
  9. GELOX [Concomitant]
     Dosage: UNK
     Dates: start: 20090402
  10. LOPERAMIDE [Concomitant]
     Dosage: UNK
     Dates: start: 20090410, end: 20091006
  11. IDROCILAMIDE [Concomitant]
     Dosage: UNK
     Dates: start: 20090410
  12. METEOXANE [Concomitant]
     Dosage: UNK
     Dates: start: 20090728

REACTIONS (2)
  - PHLEBITIS [None]
  - PULMONARY EMBOLISM [None]
